FAERS Safety Report 20008548 (Version 1)
Quarter: 2021Q4

REPORT INFORMATION
  Report Type: Spontaneous
  Country: FR (occurrence: FR)
  Receive Date: 20211029
  Receipt Date: 20211029
  Transmission Date: 20220303
  Serious: Yes (Other)
  Sender: FDA-Public Use
  Company Number: FR-CHIESI-2021CHF04940

PATIENT
  Sex: Male

DRUGS (4)
  1. CUROSURF [Suspect]
     Active Substance: PORACTANT ALFA
     Indication: Product used for unknown indication
     Dosage: UNK
     Route: 007
  2. KETAMINE [Concomitant]
     Active Substance: KETAMINE
     Indication: Product used for unknown indication
     Dosage: 3 DOSAGE FORM, QD
     Dates: start: 20200212, end: 20200212
  3. PROPOFOL LIPURO [Concomitant]
     Active Substance: PROPOFOL
     Indication: Sedation
     Dosage: 3 DOSAGE FORM, QD
     Dates: start: 20200212, end: 20200212
  4. MEDIALIPIDE [GLYCINE MAX SEED OIL;MEDIUM-CHAIN TRIGLYCERIDES] [Concomitant]
     Indication: Product used for unknown indication
     Dosage: 2 DOSAGE FORM, QD
     Dates: start: 20200212, end: 20200212

REACTIONS (1)
  - Neonatal hypoxia [Recovered/Resolved]

NARRATIVE: CASE EVENT DATE: 20200212
